FAERS Safety Report 21964237 (Version 1)
Quarter: 2023Q1

REPORT INFORMATION
  Report Type: Spontaneous
  Country: US (occurrence: None)
  Receive Date: 20230206
  Receipt Date: 20230206
  Transmission Date: 20230418
  Serious: No
  Sender: FDA-Public Use
  Company Number: None

PATIENT
  Age: 59 Year
  Sex: Female
  Weight: 85.5 kg

DRUGS (9)
  1. PAXLOVID [Suspect]
     Active Substance: NIRMATRELVIR\RITONAVIR
     Indication: COVID-19
     Dosage: FREQUENCY : TWICE A DAY;?
     Route: 048
     Dates: start: 20230121, end: 20230125
  2. ARMOUR THYROID [Concomitant]
     Active Substance: THYROID, PORCINE
  3. PRISTIQ EXTENDED-RELEASE [Concomitant]
     Active Substance: DESVENLAFAXINE SUCCINATE
  4. SUNOSI [Concomitant]
     Active Substance: SOLRIAMFETOL
  5. CELEBREX [Concomitant]
     Active Substance: CELECOXIB
  6. ROBAXIN [Concomitant]
     Active Substance: METHOCARBAMOL
  7. FLEXERIL [Concomitant]
     Active Substance: CYCLOBENZAPRINE HYDROCHLORIDE
  8. TYLENOL [Concomitant]
  9. MUCINEX [Concomitant]

REACTIONS (2)
  - COVID-19 [None]
  - Fatigue [None]

NARRATIVE: CASE EVENT DATE: 20230202
